FAERS Safety Report 15214199 (Version 1)
Quarter: 2018Q3

REPORT INFORMATION
  Report Type: Report from Study
  Country: GB (occurrence: GB)
  Receive Date: 20180730
  Receipt Date: 20180730
  Transmission Date: 20181010
  Serious: Yes (Other)
  Sender: FDA-Public Use
  Company Number: PHHY2018GB053661

PATIENT
  Sex: Female

DRUGS (1)
  1. COSENTYX [Suspect]
     Active Substance: SECUKINUMAB
     Indication: ANKYLOSING SPONDYLITIS
     Dosage: 150MG WEEKLY ( WEEK 0, TO WEEK 3) THERE AFTER 150MG MONTHLY.
     Route: 058
     Dates: start: 20180704

REACTIONS (3)
  - Dyspnoea exertional [Unknown]
  - Fatigue [Unknown]
  - Night sweats [Unknown]
